FAERS Safety Report 9981302 (Version 5)
Quarter: 2014Q2

REPORT INFORMATION
  Report Type: Spontaneous
  Country: US (occurrence: None)
  Receive Date: 20140305
  Receipt Date: 20140602
  Transmission Date: 20141212
  Serious: Yes (Other)
  Sender: FDA-Public Use
  Company Number: ADR-2014-00334

PATIENT
  Age: 69 Year
  Sex: Male

DRUGS (15)
  1. BACLOFEN [Suspect]
     Indication: PAIN
  2. FENTANYL [Suspect]
  3. CLONIDINE [Suspect]
  4. DILAUDID [Suspect]
  5. FENTANYL PATCH [Suspect]
  6. DILAUDID [Suspect]
  7. ZOFRAN [Suspect]
  8. TESTOSTERONE [Suspect]
  9. HYDROCHLOROTHIAZIDE (HCTZ) [Suspect]
  10. PAXIL [Suspect]
  11. ESGIC [Suspect]
  12. LISINOPRIL [Suspect]
  13. WELLBUTRIN [Suspect]
  14. LASIX [Suspect]
  15. AMBIEN [Suspect]

REACTIONS (10)
  - Nausea [None]
  - Influenza [None]
  - Blood potassium decreased [None]
  - Drug withdrawal syndrome [None]
  - Balance disorder [None]
  - Pain [None]
  - Malaise [None]
  - Device malfunction [None]
  - No therapeutic response [None]
  - Device alarm issue [None]
